FAERS Safety Report 24398722 (Version 1)
Quarter: 2024Q4

REPORT INFORMATION
  Report Type: Spontaneous
  Country: PL (occurrence: PL)
  Receive Date: 20241004
  Receipt Date: 20241004
  Transmission Date: 20250115
  Serious: Yes (Life-Threatening, Hospitalization, Other)
  Sender: MYLAN
  Company Number: None

PATIENT
  Age: 76 Year
  Sex: Female
  Weight: 65 kg

DRUGS (2)
  1. TRAMADOL [Suspect]
     Active Substance: TRAMADOL
     Indication: Product used for unknown indication
     Dosage: 1.5 GRAM
     Route: 048
  2. ACETAMINOPHEN [Suspect]
     Active Substance: ACETAMINOPHEN
     Indication: Product used for unknown indication
     Dosage: 13 GRAM
     Route: 048

REACTIONS (5)
  - Toxicity to various agents [Unknown]
  - Suicide attempt [Unknown]
  - Confusional state [Unknown]
  - Somnolence [Unknown]
  - Drug abuse [Unknown]

NARRATIVE: CASE EVENT DATE: 20201101
